FAERS Safety Report 9170732 (Version 1)
Quarter: 2013Q1

REPORT INFORMATION
  Report Type: Spontaneous
  Country: US (occurrence: None)
  Receive Date: 20130311
  Receipt Date: 20130311
  Transmission Date: 20140127
  Serious: Yes (Other)
  Sender: FDA-Public Use
  Company Number: 2013SA022401

PATIENT
  Sex: Male

DRUGS (1)
  1. ICY HOT POWER GEL / UNKNOWN / UNKNOWN [Suspect]
     Indication: MYALGIA
     Dates: start: 20130302

REACTIONS (3)
  - Application site pain [None]
  - Application site pain [None]
  - Chemical injury [None]
